FAERS Safety Report 15209849 (Version 1)
Quarter: 2018Q3

REPORT INFORMATION
  Report Type: Spontaneous
  Country: US (occurrence: US)
  Receive Date: 20180727
  Receipt Date: 20180727
  Transmission Date: 20181010
  Serious: Yes (Hospitalization)
  Sender: FDA-Public Use
  Company Number: US-ACTELION-A-NJ2018-176140

PATIENT
  Age: 66 Year
  Sex: Female

DRUGS (12)
  1. VALCHLOR [Suspect]
     Active Substance: MECHLORETHAMINE
     Indication: MYCOSIS FUNGOIDES
     Dosage: UNK
     Route: 061
     Dates: start: 20170110
  2. HYDROXYCHLOROQUINE SULFATE. [Concomitant]
     Active Substance: HYDROXYCHLOROQUINE SULFATE
  3. COLACE [Concomitant]
     Active Substance: DOCUSATE SODIUM
  4. LEXAPRO [Concomitant]
     Active Substance: ESCITALOPRAM OXALATE
  5. VALCHLOR [Suspect]
     Active Substance: MECHLORETHAMINE
     Dosage: UNK
     Route: 061
     Dates: start: 20180718
  6. ASPIRIN. [Concomitant]
     Active Substance: ASPIRIN
  7. DILTIAZEM. [Concomitant]
     Active Substance: DILTIAZEM
  8. TRICOR [Concomitant]
     Active Substance: FENOFIBRATE
  9. PREVACID [Concomitant]
     Active Substance: LANSOPRAZOLE
  10. GLUCOSAMINE/CHONDROITIN [Concomitant]
  11. VITAMINS NOS [Concomitant]
     Active Substance: VITAMINS
  12. FISH OIL [Concomitant]
     Active Substance: FISH OIL

REACTIONS (3)
  - Emphysema [Recovered/Resolved]
  - Pneumonia [Recovered/Resolved]
  - Pulmonary thrombosis [Recovered/Resolved]
